FAERS Safety Report 6938388-X (Version None)
Quarter: 2010Q3

REPORT INFORMATION
  Report Type: 
  Country: None (occurrence: None)
  Receive Date: 20100824
  Receipt Date: 20100817
  Transmission Date: 20110219
  Serious: Yes (Other)
  Sender: FDA-Public Use
  Company Number: CN-PFIZER INC-2010095669

PATIENT
  Sex: Male

DRUGS (1)
  1. GLUCOTROL [Suspect]
     Indication: BLOOD GLUCOSE INCREASED
     Dosage: UNK
     Route: 048
     Dates: start: 20060101

REACTIONS (2)
  - BLOOD GLUCOSE ABNORMAL [None]
  - HEPATIC ENZYME INCREASED [None]
